FAERS Safety Report 7523683-6 (Version None)
Quarter: 2011Q2

REPORT INFORMATION
  Report Type: 
  Country: None (occurrence: None)
  Receive Date: 20110603
  Receipt Date: 20110527
  Transmission Date: 20111010
  Serious: Yes (Hospitalization)
  Sender: FDA-Public Use
  Company Number: US-SANOFI-AVENTIS-2011SA034086

PATIENT
  Age: 56 Year
  Sex: Male

DRUGS (2)
  1. OPTICLICK [Suspect]
     Indication: TYPE 2 DIABETES MELLITUS
     Dates: start: 20050101
  2. LANTUS [Suspect]
     Indication: TYPE 2 DIABETES MELLITUS
     Dosage: 10 TO 20 UNITS
     Route: 058
     Dates: start: 20050101

REACTIONS (2)
  - STAPHYLOCOCCAL INFECTION [None]
  - GANGRENE [None]
